FAERS Safety Report 10227037 (Version 2)
Quarter: 2014Q4

REPORT INFORMATION
  Report Type: Report from Study
  Country: US (occurrence: US)
  Receive Date: 20140610
  Receipt Date: 20141002
  Transmission Date: 20150528
  Serious: Yes (Other)
  Sender: FDA-Public Use
  Company Number: US-ROCHE-1414333

PATIENT
  Age: 9 Year
  Sex: Male
  Weight: 21.99 kg

DRUGS (3)
  1. NUTROPIN AQ [Suspect]
     Active Substance: SOMATROPIN
     Indication: BODY HEIGHT BELOW NORMAL
     Route: 058
     Dates: start: 201306
  2. NUTROPIN AQ [Suspect]
     Active Substance: SOMATROPIN
     Route: 058
     Dates: start: 20140402
  3. NUTROPIN AQ [Suspect]
     Active Substance: SOMATROPIN
     Route: 058
     Dates: start: 201309

REACTIONS (4)
  - Scoliosis [Unknown]
  - Injection site bruising [Unknown]
  - Spinal deformity [Unknown]
  - Growing pains [Unknown]

NARRATIVE: CASE EVENT DATE: 20140402
